FAERS Safety Report 5232764-1 (Version None)
Quarter: 2007Q1

REPORT INFORMATION
  Report Type: 
  Country: None (occurrence: None)
  Receive Date: 20070207
  Receipt Date: 20070126
  Transmission Date: 20070707
  Serious: Yes (Other)
  Sender: FDA-Public Use
  Company Number: ES-ELI_LILLY_AND_COMPANY-ES200701004945

PATIENT
  Age: 54 Year
  Sex: Male

DRUGS (2)
  1. CYMBALTA [Suspect]
     Indication: DEPRESSION
     Dosage: 60 MG, DAILY (1/D)
     Route: 048
     Dates: start: 20061101, end: 20061101
  2. INSULIN [Concomitant]
     Indication: DIABETES MELLITUS

REACTIONS (1)
  - HYPERGLYCAEMIA [None]
